FAERS Safety Report 12566186 (Version 9)
Quarter: 2017Q1

REPORT INFORMATION
  Report Type: Spontaneous
  Country: CA (occurrence: CA)
  Receive Date: 20160718
  Receipt Date: 20170301
  Transmission Date: 20170428
  Serious: Yes (Hospitalization, Other)
  Sender: FDA-Public Use
  Company Number: CA-GLAXOSMITHKLINE-CA2016GSK101052

PATIENT
  Sex: Female

DRUGS (4)
  1. NUCALA [Suspect]
     Active Substance: MEPOLIZUMAB
     Indication: ASTHMA
     Dosage: 100 MG, Z
     Dates: start: 20160906
  2. ADVAIR HFA [Suspect]
     Active Substance: FLUTICASONE PROPIONATE\SALMETEROL XINAFOATE
     Indication: ASTHMA
     Dosage: UNK
  3. VENTOLIN [Suspect]
     Active Substance: ALBUTEROL SULFATE
     Indication: ASTHMA
     Dosage: UNK
  4. NUCALA [Suspect]
     Active Substance: MEPOLIZUMAB
     Dosage: 100 MG, Z
     Dates: start: 20160906

REACTIONS (21)
  - Back pain [Unknown]
  - Hypertension [Unknown]
  - Drug dose omission [Unknown]
  - Decreased appetite [Unknown]
  - Diabetes mellitus [Unknown]
  - Blood cholesterol increased [Unknown]
  - Gait disturbance [Not Recovered/Not Resolved]
  - Malaise [Unknown]
  - Diarrhoea [Unknown]
  - Intervertebral disc protrusion [Unknown]
  - Amnesia [Unknown]
  - Insomnia [Unknown]
  - Gait disturbance [Unknown]
  - Overdose [Unknown]
  - Myalgia [Recovering/Resolving]
  - Pain in extremity [Not Recovered/Not Resolved]
  - Phlebitis [Not Recovered/Not Resolved]
  - Feeding disorder [Unknown]
  - Weight increased [Unknown]
  - Osteoarthritis [Unknown]
  - Ill-defined disorder [Unknown]
